FAERS Safety Report 10305851 (Version 1)
Quarter: 2014Q3

REPORT INFORMATION
  Report Type: Spontaneous
  Country: US (occurrence: None)
  Receive Date: 20140711
  Receipt Date: 20140711
  Transmission Date: 20150326
  Serious: Yes (Hospitalization, Other)
  Sender: FDA-Public Use
  Company Number: UNT-2014-002730

PATIENT
  Age: 7 Year
  Sex: Male
  Weight: 15 kg

DRUGS (6)
  1. REMODULIN [Suspect]
     Active Substance: TREPROSTINIL
     Indication: PULMONARY ARTERIAL HYPERTENSION
     Route: 041
     Dates: start: 20130906
  2. SPIRONOLACTON (SPIRONOLACTON) [Concomitant]
  3. SILDENAFIL (SILDENAFIL) [Concomitant]
     Active Substance: SILDENAFIL
  4. TRACLEER /01587701/ (BOSENTAN) [Concomitant]
  5. ASPIRIN. [Concomitant]
     Active Substance: ASPIRIN
  6. LASIX [Concomitant]
     Active Substance: FUROSEMIDE

REACTIONS (14)
  - Pyrexia [None]
  - Increased bronchial secretion [None]
  - Hypotension [None]
  - Agitation [None]
  - Gram stain positive [None]
  - Pulmonary haemorrhage [None]
  - Atelectasis [None]
  - Medical device complication [None]
  - Traumatic haemothorax [None]
  - Acidosis [None]
  - Vomiting [None]
  - Nausea [None]
  - Constipation [None]
  - Blood glucose abnormal [None]

NARRATIVE: CASE EVENT DATE: 20140515
